FAERS Safety Report 4489535-3 (Version None)
Quarter: 2004Q4

REPORT INFORMATION
  Report Type: 
  Country: None (occurrence: None)
  Receive Date: 20041026
  Receipt Date: 20041006
  Transmission Date: 20050328
  Serious: Yes (Hospitalization, Other)
  Sender: FDA-Public Use
  Company Number: JP_041004806

PATIENT
  Age: 1 Day
  Sex: Female

DRUGS (3)
  1. VINBLASTINE SULFATE [Suspect]
  2. CISPLATIN [Concomitant]
  3. BLEOMYCIN [Concomitant]

REACTIONS (4)
  - CAESAREAN SECTION [None]
  - DRUG EXPOSURE DURING PREGNANCY [None]
  - FOETAL GROWTH RETARDATION [None]
  - PREMATURE BABY [None]
